FAERS Safety Report 15678562 (Version 7)
Quarter: 2019Q1

REPORT INFORMATION
  Report Type: Report from Study
  Country: PL (occurrence: PL)
  Receive Date: 20181201
  Receipt Date: 20190201
  Transmission Date: 20190417
  Serious: Yes (Hospitalization)
  Sender: FDA-Public Use
  Company Number: PHHO2018PL012166

PATIENT
  Age: 62 Year
  Sex: Female
  Weight: 45 kg

DRUGS (19)
  1. NEOPARIN [Concomitant]
     Indication: THROMBOPHLEBITIS
     Dosage: ML QD
     Route: 058
     Dates: start: 20180903
  2. SEVREDOL [Concomitant]
     Active Substance: MORPHINE
     Indication: SPINAL PAIN
     Dosage: 20 MG, PRN
     Route: 048
     Dates: start: 20180911, end: 20181008
  3. POLPRAZOL [Concomitant]
     Active Substance: OMEPRAZOLE
     Indication: PROPHYLAXIS
     Dosage: 20 MG, QD
     Route: 048
     Dates: start: 20180817
  4. PARACETAMOL [Concomitant]
     Active Substance: ACETAMINOPHEN
     Indication: SPINAL PAIN
     Dosage: 500 MG, BID
     Route: 048
     Dates: start: 20180802, end: 20180805
  5. METOKLOPRAMID [Concomitant]
     Indication: NAUSEA
     Dosage: 10 MG, TID
     Route: 048
     Dates: start: 20180911, end: 20181103
  6. GABAPENTIN. [Concomitant]
     Active Substance: GABAPENTIN
     Indication: SPINAL PAIN
     Dosage: 100 MG, TID
     Route: 048
     Dates: start: 20180817, end: 20180820
  7. VITAMIN B6 [Concomitant]
     Active Substance: PYRIDOXINE HYDROCHLORIDE
     Indication: PROPHYLAXIS
     Dosage: 100 MG, TID
     Route: 048
     Dates: start: 20171204
  8. LEE011 [Suspect]
     Active Substance: RIBOCICLIB
     Indication: BREAST CANCER
     Dosage: 600 MG, QD
     Route: 048
     Dates: start: 20171003, end: 20181101
  9. LETROZOLE. [Suspect]
     Active Substance: LETROZOLE
     Indication: BREAST CANCER
     Dosage: 2.5 MG, QD
     Route: 048
     Dates: start: 20171003
  10. NIMESIL [Concomitant]
     Active Substance: NIMESULIDE
     Indication: SPINAL PAIN
     Dosage: 100 MG, BID
     Route: 048
     Dates: start: 20180806, end: 20180911
  11. MATRIFEN [Concomitant]
     Active Substance: FENTANYL
     Indication: SPINAL PAIN
     Dosage: 25 MG, OT
     Route: 062
     Dates: start: 20180911, end: 20181103
  12. CALCII CARBONAS [Concomitant]
     Indication: OSTEOPOROSIS
     Dosage: 1000 MG, QD
     Route: 048
     Dates: start: 20161103
  13. ACIDUM FOLICUM [Concomitant]
     Active Substance: FOLIC ACID
     Indication: PROPHYLAXIS
     Dosage: 15 MG, TID
     Route: 048
     Dates: start: 20171204
  14. DEXAMETHASONE. [Concomitant]
     Active Substance: DEXAMETHASONE
     Indication: SPINAL PAIN
     Dosage: 2 MG, QD
     Route: 048
     Dates: start: 20180817, end: 20180820
  15. POLFILIN [Concomitant]
     Active Substance: PENTOXIFYLLINE
     Indication: THROMBOPHLEBITIS
     Dosage: 400 MG, UNK
     Route: 048
     Dates: start: 20181008, end: 20181103
  16. ZOMIKOS [Concomitant]
     Indication: METASTASES TO BONE
     Dosage: 4 MG, Q3MO
     Route: 042
     Dates: start: 20180622
  17. PREGABALINA [Concomitant]
     Active Substance: PREGABALIN
     Indication: SPINAL PAIN
     Dosage: 75 MG, QD
     Route: 048
     Dates: start: 20180911
  18. OXYCODONE [Concomitant]
     Active Substance: OXYCODONE
     Indication: SPINAL PAIN
     Dosage: 10 MG, BID
     Route: 048
     Dates: start: 20180817, end: 20180820
  19. DORETA [Concomitant]
     Active Substance: ACETAMINOPHEN\TRAMADOL HYDROCHLORIDE
     Indication: SPINAL PAIN
     Dosage: UNK
     Route: 048
     Dates: start: 20180806, end: 20180817

REACTIONS (1)
  - Cardiac failure [Not Recovered/Not Resolved]

NARRATIVE: CASE EVENT DATE: 20181104
